FAERS Safety Report 6440176-8 (Version None)
Quarter: 2009Q4

REPORT INFORMATION
  Report Type: 
  Country: None (occurrence: None)
  Receive Date: 20091113
  Receipt Date: 20090630
  Transmission Date: 20100525
  Serious: No
  Sender: FDA-Public Use
  Company Number: A0794666A

PATIENT
  Age: 75 Year
  Sex: Female

DRUGS (10)
  1. CARVEDILOL [Suspect]
     Dosage: 25MG TWICE PER DAY
     Route: 048
     Dates: start: 20020101, end: 20090501
  2. FUROSEMIDE [Concomitant]
  3. METFORMIN HCL [Concomitant]
  4. SPIRONOLACTONE [Concomitant]
  5. CLONIDINE [Concomitant]
  6. ENALAPRIL [Concomitant]
  7. GLYBURIDE [Concomitant]
  8. ALLOPURINOL [Concomitant]
  9. VITAMINS [Concomitant]
  10. LIPITOR [Concomitant]

REACTIONS (3)
  - ASTHENIA [None]
  - DRUG DISPENSING ERROR [None]
  - HEART RATE INCREASED [None]
